FAERS Safety Report 10191970 (Version 1)
Quarter: 2014Q2

REPORT INFORMATION
  Report Type: Spontaneous
  Country: DE (occurrence: DE)
  Receive Date: 20140523
  Receipt Date: 20140523
  Transmission Date: 20141212
  Serious: Yes (Other)
  Sender: FDA-Public Use
  Company Number: DE-WATSON-2014-10867

PATIENT
  Age: 79 Year
  Sex: Male

DRUGS (1)
  1. TRELSTAR UNKNOWN STRENGTH (WATSON LABORATORIES) [Suspect]
     Indication: PROSTATE CANCER
     Dosage: UNK, UNKNOWN
     Route: 065

REACTIONS (7)
  - Cataract [Unknown]
  - Nausea [Unknown]
  - Vertigo [Unknown]
  - Hyperhidrosis [Unknown]
  - Hot flush [Unknown]
  - Oedema peripheral [Unknown]
  - Visual impairment [Unknown]
